FAERS Safety Report 9116652 (Version 1)
Quarter: 2013Q1

REPORT INFORMATION
  Report Type: Spontaneous
  Country: AR (occurrence: AR)
  Receive Date: 20130225
  Receipt Date: 20130225
  Transmission Date: 20140127
  Serious: Yes (Hospitalization, Other)
  Sender: FDA-Public Use
  Company Number: PHHY2013AR017665

PATIENT
  Sex: Male

DRUGS (1)
  1. EXELON PATCH [Suspect]
     Indication: BRAIN INJURY
     Dosage: 4.6 MG, DAILY (ONE 5CM2 PATCH/DAY)
     Route: 062

REACTIONS (5)
  - Brain oedema [Recovering/Resolving]
  - Motor dysfunction [Recovering/Resolving]
  - Sensory loss [Recovering/Resolving]
  - Cognitive disorder [Recovering/Resolving]
  - Inflammation [Unknown]
